FAERS Safety Report 5340398-3 (Version None)
Quarter: 2007Q2

REPORT INFORMATION
  Report Type: 
  Country: None (occurrence: None)
  Receive Date: 20070531
  Receipt Date: 20070522
  Transmission Date: 20071010
  Serious: Yes (Other)
  Sender: FDA-Public Use
  Company Number: JP-ROCHE-490862

PATIENT
  Age: 8 Year
  Sex: Female

DRUGS (5)
  1. TAMIFLU [Suspect]
     Dosage: FORM REPORTED AS DRY SYRUP.
     Route: 048
     Dates: start: 20070321, end: 20070321
  2. TAMIFLU [Suspect]
     Dosage: FORM REPORTED AS DRY SYRUP.
     Route: 048
     Dates: start: 20070322, end: 20070325
  3. TAMIFLU [Suspect]
     Dosage: FORM REPORTED AS DRY SYRUP.
     Route: 048
     Dates: start: 20070326, end: 20070326
  4. MUCODYNE [Concomitant]
     Route: 048
     Dates: start: 20070321, end: 20070326
  5. MUCOSAL [Concomitant]
     Route: 048
     Dates: start: 20070321, end: 20070326

REACTIONS (1)
  - ABNORMAL BEHAVIOUR [None]
